FAERS Safety Report 7501118-7 (Version None)
Quarter: 2011Q2

REPORT INFORMATION
  Report Type: 
  Country: None (occurrence: None)
  Receive Date: 20110524
  Receipt Date: 20100716
  Transmission Date: 20111010
  Serious: No
  Sender: FDA-Public Use
  Company Number: US-NOVEN-ALL1-2010-03895

PATIENT

DRUGS (3)
  1. RISPERDAL [Concomitant]
     Dosage: 3 MG, 1X/DAY:QD AT NIGHT
     Route: 048
     Dates: start: 20040101
  2. DAYTRANA [Suspect]
     Dosage: 15 MG, 1X/DAY:QD
     Route: 062
     Dates: start: 20100713
  3. RISPERDAL [Concomitant]
     Dosage: 2 MG, 1X/DAY:QD, IN THE DAY
     Route: 048
     Dates: start: 20040101

REACTIONS (2)
  - APPLICATION SITE RASH [None]
  - PRODUCT QUALITY ISSUE [None]
